FAERS Safety Report 11075368 (Version 6)
Quarter: 2019Q4

REPORT INFORMATION
  Report Type: Spontaneous
  Country: US (occurrence: US)
  Receive Date: 20150429
  Receipt Date: 20191111
  Transmission Date: 20200122
  Serious: Yes (Hospitalization, Other)
  Sender: FDA-Public Use
  Company Number: US-PFIZER INC-2015146259

PATIENT
  Age: 65 Year
  Sex: Female
  Weight: 89 kg

DRUGS (6)
  1. MECLIZINE HCL [Concomitant]
     Active Substance: MECLIZINE HYDROCHLORIDE
     Dosage: UNK
  2. PROMETHAZINE [Concomitant]
     Active Substance: PROMETHAZINE HYDROCHLORIDE
     Indication: IMPAIRED GASTRIC EMPTYING
     Dosage: UNK
  3. OMEPRAZOLE. [Concomitant]
     Active Substance: OMEPRAZOLE
     Dosage: UNK
  4. LYRICA [Suspect]
     Active Substance: PREGABALIN
     Indication: FIBROMYALGIA
     Dosage: 300 MG, 3X/DAY
  5. NORCO [Concomitant]
     Active Substance: ACETAMINOPHEN\HYDROCODONE BITARTRATE
     Indication: FIBROMYALGIA
     Dosage: UNK
  6. BUSPIRONE [Concomitant]
     Active Substance: BUSPIRONE HYDROCHLORIDE
     Indication: IMPAIRED GASTRIC EMPTYING
     Dosage: UNK

REACTIONS (10)
  - Bone disorder [Unknown]
  - Malaise [Recovered/Resolved]
  - Bursitis [Unknown]
  - Insomnia [Unknown]
  - Intercepted product prescribing error [Unknown]
  - Arthropathy [Unknown]
  - Cholelithiasis [Recovered/Resolved]
  - Prescribed overdose [Unknown]
  - Foot deformity [Unknown]
  - Product prescribing error [Unknown]

NARRATIVE: CASE EVENT DATE: 2015
